FAERS Safety Report 8372964-5 (Version None)
Quarter: 2012Q2

REPORT INFORMATION
  Report Type: 
  Country: None (occurrence: None)
  Receive Date: 20120521
  Receipt Date: 20110926
  Transmission Date: 20120825
  Serious: No
  Sender: FDA-Public Use
  Company Number: US-ASTRAZENECA-2011SE65113

PATIENT

DRUGS (1)
  1. PRILOSEC OTC [Suspect]
     Indication: DYSPEPSIA
     Dosage: 0.5 TABLET, 2 /DAY
     Route: 048

REACTIONS (3)
  - DRUG INEFFECTIVE [None]
  - INAPPROPRIATE SCHEDULE OF DRUG ADMINISTRATION [None]
  - WRONG TECHNIQUE IN DRUG USAGE PROCESS [None]
